FAERS Safety Report 16754072 (Version 1)
Quarter: 2019Q3

REPORT INFORMATION
  Report Type: Spontaneous
  Country: ZA (occurrence: ZA)
  Receive Date: 20190829
  Receipt Date: 20190829
  Transmission Date: 20191005
  Serious: Yes (Other)
  Sender: FDA-Public Use
  Company Number: ZA-PFIZER INC-2019369146

PATIENT
  Age: 51 Year
  Sex: Male

DRUGS (4)
  1. METFORMIN [METFORMIN HYDROCHLORIDE] [Concomitant]
     Active Substance: METFORMIN HYDROCHLORIDE
  2. COZAAR [Concomitant]
     Active Substance: LOSARTAN POTASSIUM
  3. MIRADEP [Concomitant]
     Active Substance: MIRTAZAPINE
  4. ASPAVOR [Suspect]
     Active Substance: ATORVASTATIN
     Dosage: 10 MG, 1X/DAY

REACTIONS (5)
  - Diarrhoea [Recovered/Resolved]
  - Arthralgia [Recovered/Resolved]
  - Amnesia [Recovered/Resolved]
  - Suicidal ideation [Recovered/Resolved]
  - Confusional state [Recovered/Resolved]
